FAERS Safety Report 8444053-2 (Version None)
Quarter: 2012Q2

REPORT INFORMATION
  Report Type: 
  Country: None (occurrence: None)
  Receive Date: 20120611
  Receipt Date: 20120530
  Transmission Date: 20120825
  Serious: Yes (Death)
  Sender: FDA-Public Use
  Company Number: ADR-2012-01035

PATIENT

DRUGS (1)
  1. LIORESAL [Suspect]
     Indication: DYSTONIA

REACTIONS (1)
  - RESPIRATORY FAILURE [None]
